FAERS Safety Report 6102769-7 (Version None)
Quarter: 2009Q1

REPORT INFORMATION
  Report Type: 
  Country: None (occurrence: None)
  Receive Date: 20090304
  Receipt Date: 20090224
  Transmission Date: 20090719
  Serious: Yes (Other)
  Sender: FDA-Public Use
  Company Number: US-ROXANE LABORATORIES, INC.-2009-RO-00190RO

PATIENT
  Age: 35 Year
  Sex: Female

DRUGS (7)
  1. PREDNISONE [Suspect]
     Indication: URTICARIA
  2. DEXAMETHASONE [Concomitant]
     Indication: URTICARIA
  3. DEXAMETHASONE [Concomitant]
     Indication: FLUSHING
  4. DEXAMETHASONE [Concomitant]
     Indication: ANGIOEDEMA
  5. DEXAMETHASONE [Concomitant]
     Indication: PRURITUS
  6. DEXAMETHASONE [Concomitant]
     Indication: CONDITION AGGRAVATED
  7. DEXAMETHASONE [Concomitant]
     Indication: DRUG HYPERSENSITIVITY

REACTIONS (5)
  - ANGIOEDEMA [None]
  - DRUG HYPERSENSITIVITY [None]
  - FLUSHING [None]
  - PRURITUS [None]
  - URTICARIA [None]
